FAERS Safety Report 6240264-5 (Version None)
Quarter: 2009Q2

REPORT INFORMATION
  Report Type: 
  Country: None (occurrence: None)
  Receive Date: 20090623
  Receipt Date: 20080625
  Transmission Date: 20091009
  Serious: No
  Sender: FDA-Public Use
  Company Number: US-ASTRAZENECA-2008UW10242

PATIENT
  Age: 66 Year
  Sex: Female
  Weight: 49.4 kg

DRUGS (3)
  1. PULMICORT FLEXHALER [Suspect]
     Indication: CHRONIC OBSTRUCTIVE PULMONARY DISEASE
     Dosage: 180 MCG; 2 PUFFS
     Route: 055
     Dates: start: 20080401, end: 20080601
  2. NIASPAN [Concomitant]
  3. CHOLESTEROL MEDICATION [Concomitant]

REACTIONS (5)
  - ARTHRALGIA [None]
  - DIZZINESS [None]
  - LIP SWELLING [None]
  - PAIN [None]
  - THROAT IRRITATION [None]
